FAERS Safety Report 6844072-3 (Version None)
Quarter: 2010Q3

REPORT INFORMATION
  Report Type: 
  Country: None (occurrence: None)
  Receive Date: 20100715
  Receipt Date: 20100705
  Transmission Date: 20110219
  Serious: Yes (Other)
  Sender: FDA-Public Use
  Company Number: FI-PFIZER INC-2010046678

PATIENT
  Age: 47 Year
  Sex: Male
  Weight: 90 kg

DRUGS (3)
  1. CHAMPIX [Suspect]
     Indication: SMOKING CESSATION THERAPY
     Dosage: 1 MG, 2X/DAY
     Dates: start: 20100327, end: 20100101
  2. ATORVASTATIN CALCIUM [Suspect]
     Dosage: 40 MG, UNK
  3. PRIMASPAN [Concomitant]
     Dosage: 10 MG, UNK

REACTIONS (14)
  - ANXIETY [None]
  - CONSTIPATION [None]
  - DEPENDENCE [None]
  - DIARRHOEA [None]
  - DRUG DEPENDENCE [None]
  - DYSGEUSIA [None]
  - EUPHORIC MOOD [None]
  - HYPERHIDROSIS [None]
  - IRRITABILITY [None]
  - MOOD ALTERED [None]
  - NAUSEA [None]
  - SALIVARY HYPERSECRETION [None]
  - TEARFULNESS [None]
  - TREMOR [None]
